FAERS Safety Report 5283034-7 (Version None)
Quarter: 2007Q2

REPORT INFORMATION
  Report Type: 
  Country: None (occurrence: None)
  Receive Date: 20070402
  Receipt Date: 20070320
  Transmission Date: 20071010
  Serious: Yes (Hospitalization)
  Sender: FDA-Public Use
  Company Number: PHRM2007FR00942

PATIENT
  Age: 40 Year
  Sex: Male
  Weight: 75 kg

DRUGS (1)
  1. LAMISIL [Suspect]
     Indication: NAIL TINEA
     Dosage: 250 MG, QD
     Route: 048
     Dates: start: 20060818, end: 20061127

REACTIONS (2)
  - CHOLECYSTITIS [None]
  - PYREXIA [None]
